FAERS Safety Report 7742483-5 (Version None)
Quarter: 2011Q3

REPORT INFORMATION
  Report Type: 
  Country: None (occurrence: None)
  Receive Date: 20110912
  Receipt Date: 20110906
  Transmission Date: 20111222
  Serious: Yes (Death)
  Sender: FDA-Public Use
  Company Number: US-ASTELLAS-2011US005460

PATIENT
  Sex: Male
  Weight: 100 kg

DRUGS (2)
  1. AMEVIVE [Suspect]
     Dosage: 15 MG, WEEKLY
     Route: 030
     Dates: start: 20090617, end: 20090926
  2. AMEVIVE [Suspect]
     Indication: PSORIASIS
     Dosage: 15 MG, WEEKLY
     Route: 030
     Dates: start: 20050201

REACTIONS (1)
  - LEUKAEMIA [None]
